FAERS Safety Report 9467618 (Version 3)
Quarter: 2013Q4

REPORT INFORMATION
  Report Type: Report from Study
  Country: CA (occurrence: CA)
  Receive Date: 20130821
  Receipt Date: 20131018
  Transmission Date: 20140711
  Serious: Yes (Other)
  Sender: FDA-Public Use
  Company Number: CA-ROCHE-1108737

PATIENT
  Age: 47 Year
  Sex: Male
  Weight: 90 kg

DRUGS (3)
  1. ACTEMRA [Suspect]
     Indication: RHEUMATOID ARTHRITIS
     Route: 042
     Dates: start: 20120725
  2. PLAQUENIL [Concomitant]
     Route: 065
  3. ARAVA [Concomitant]

REACTIONS (17)
  - Hernia [Not Recovered/Not Resolved]
  - Synovial rupture [Not Recovered/Not Resolved]
  - Wound infection [Recovering/Resolving]
  - Nasopharyngitis [Not Recovered/Not Resolved]
  - Nasal ulcer [Recovered/Resolved]
  - Rhinorrhoea [Recovered/Resolved]
  - Grip strength decreased [Not Recovered/Not Resolved]
  - Pain in extremity [Not Recovered/Not Resolved]
  - Joint crepitation [Not Recovered/Not Resolved]
  - Laceration [Not Recovered/Not Resolved]
  - Weight decreased [Unknown]
  - Pain in extremity [Not Recovered/Not Resolved]
  - Blood pressure increased [Not Recovered/Not Resolved]
  - Wound infection [Recovering/Resolving]
  - Infected bites [Recovering/Resolving]
  - Rash papular [Not Recovered/Not Resolved]
  - Animal bite [Not Recovered/Not Resolved]
